FAERS Safety Report 9239227 (Version 5)
Quarter: 2013Q3

REPORT INFORMATION
  Report Type: Report from Study
  Country: CA (occurrence: CA)
  Receive Date: 20130418
  Receipt Date: 20130819
  Transmission Date: 20140515
  Serious: Yes (Hospitalization)
  Sender: FDA-Public Use
  Company Number: CA-ROCHE-1212636

PATIENT
  Age: 35 Year
  Sex: Female
  Weight: 91 kg

DRUGS (18)
  1. RITUXAN [Suspect]
     Indication: RHEUMATOID ARTHRITIS
     Route: 042
     Dates: start: 20120906
  2. HYDROCHLOROTHIAZIDE [Suspect]
     Indication: PRODUCT USED FOR UNKNOWN INDICATION
     Route: 065
  3. IMOVANE [Concomitant]
  4. PARIET [Concomitant]
  5. CESAMET [Concomitant]
  6. OXYCONTIN [Concomitant]
  7. OXY IR [Concomitant]
  8. PREDNISONE [Concomitant]
  9. ZOFRAN [Concomitant]
  10. IMODIUM [Concomitant]
     Route: 065
  11. TYLENOL #1 (CANADA) [Concomitant]
     Route: 065
  12. AXERT [Concomitant]
     Route: 065
  13. NASONEX [Concomitant]
     Route: 065
  14. DIPHENHYDRAMINE HYDROCHLORIDE [Concomitant]
     Route: 048
     Dates: start: 20120906
  15. ACETAMINOPHEN [Concomitant]
     Indication: PREMEDICATION
     Route: 048
     Dates: start: 20120906
  16. METHYLPREDNISOLONE [Concomitant]
     Route: 042
     Dates: start: 20120906
  17. GRAVOL [Concomitant]
     Route: 065
  18. HYDROMORPHONE [Concomitant]

REACTIONS (3)
  - Hernia [Recovering/Resolving]
  - Blood potassium decreased [Unknown]
  - Headache [Not Recovered/Not Resolved]
